FAERS Safety Report 21054687 (Version 1)
Quarter: 2022Q3

REPORT INFORMATION
  Report Type: Spontaneous
  Country: DE (occurrence: DE)
  Receive Date: 20220707
  Receipt Date: 20220707
  Transmission Date: 20221027
  Serious: Yes (Other)
  Sender: FDA-Public Use
  Company Number: DE-Eisai Medical Research-EC-2022-118245

PATIENT
  Age: 65 Year
  Sex: Female

DRUGS (3)
  1. LENVIMA [Suspect]
     Active Substance: LENVATINIB
     Indication: Endometrial cancer metastatic
     Dosage: DOSE AND FREQUENCY UNKNOWN
     Route: 048
     Dates: start: 202102, end: 202104
  2. LENVIMA [Suspect]
     Active Substance: LENVATINIB
     Dosage: DOSE AND FREQUENCY UNKNOWN
     Route: 048
     Dates: start: 2021, end: 202105
  3. PEMBROLIZUMAB [Suspect]
     Active Substance: PEMBROLIZUMAB
     Indication: Endometrial cancer metastatic
     Dosage: DOSE AND FREQUENCY UNKNOWN
     Route: 065
     Dates: start: 202102, end: 202105

REACTIONS (4)
  - Peritonitis [Unknown]
  - Ileal perforation [Unknown]
  - Acute abdomen [Unknown]
  - Urinary tract disorder [Unknown]

NARRATIVE: CASE EVENT DATE: 20210501
